FAERS Safety Report 17458894 (Version 4)
Quarter: 2020Q2

REPORT INFORMATION
  Report Type: Spontaneous
  Country: US (occurrence: US)
  Receive Date: 20200225
  Receipt Date: 20200403
  Transmission Date: 20200713
  Serious: No
  Sender: FDA-Public Use
  Company Number: US-PFIZER INC-2020082275

PATIENT
  Age: 72 Year
  Sex: Female

DRUGS (2)
  1. NEURONTIN [Suspect]
     Active Substance: GABAPENTIN
     Indication: KNEE ARTHROPLASTY
     Dosage: 100 MG, 3X/DAY
     Route: 048
     Dates: start: 20200108
  2. NEURONTIN [Suspect]
     Active Substance: GABAPENTIN
     Indication: PROCEDURAL PAIN

REACTIONS (2)
  - Product use in unapproved indication [Unknown]
  - Off label use [Unknown]
